FAERS Safety Report 9269723 (Version 1)
Quarter: 2013Q2

REPORT INFORMATION
  Report Type: Spontaneous
  Country: US (occurrence: US)
  Receive Date: 20130503
  Receipt Date: 20130503
  Transmission Date: 20140414
  Serious: Yes (Death, Hospitalization)
  Sender: FDA-Public Use
  Company Number: US-BRISTOL-MYERS SQUIBB COMPANY-18827295

PATIENT
  Age: 76 Year
  Sex: Female
  Weight: 117.91 kg

DRUGS (3)
  1. BYETTA [Suspect]
     Route: 058
     Dates: start: 2000
  2. DIOVAN [Suspect]
  3. INSULIN [Concomitant]
     Dosage: 1DF = 75/25 90UNITS IN QM AND 35UNITS QPM

REACTIONS (1)
  - Renal failure [Fatal]
